FAERS Safety Report 21624704 (Version 1)
Quarter: 2022Q4

REPORT INFORMATION
  Report Type: Report from Study
  Country: US (occurrence: US)
  Receive Date: 20221122
  Receipt Date: 20221122
  Transmission Date: 20230112
  Serious: Yes (Other)
  Sender: FDA-Public Use
  Company Number: US-ABBVIE-4172603

PATIENT
  Sex: Female

DRUGS (1)
  1. RINVOQ [Suspect]
     Active Substance: UPADACITINIB
     Indication: Rheumatoid arthritis
     Route: 048
     Dates: start: 202208

REACTIONS (14)
  - Intestinal haemorrhage [Unknown]
  - Diarrhoea [Not Recovered/Not Resolved]
  - Palpitations [Unknown]
  - Vomiting [Not Recovered/Not Resolved]
  - Abdominal pain [Not Recovered/Not Resolved]
  - Haemoglobin decreased [Not Recovered/Not Resolved]
  - Pain [Not Recovered/Not Resolved]
  - Neuropathy peripheral [Unknown]
  - Thermal burn [Unknown]
  - Device dislocation [Unknown]
  - Muscle spasms [Unknown]
  - Fall [Unknown]
  - Dyspnoea [Not Recovered/Not Resolved]
  - General physical health deterioration [Unknown]

NARRATIVE: CASE EVENT DATE: 20220101
